FAERS Safety Report 12374039 (Version 2)
Quarter: 2017Q1

REPORT INFORMATION
  Report Type: Spontaneous
  Country: FR (occurrence: FR)
  Receive Date: 20160517
  Receipt Date: 20170102
  Transmission Date: 20170428
  Serious: Yes (Hospitalization)
  Sender: FDA-Public Use
  Company Number: FR-ROCHE-1756524

PATIENT
  Age: 12 Year
  Sex: Female

DRUGS (10)
  1. NOVORAPID [Concomitant]
     Active Substance: INSULIN ASPART
  2. ROVALCYTE [Suspect]
     Active Substance: VALGANCICLOVIR HYDROCHLORIDE
     Route: 048
     Dates: start: 201501, end: 20151016
  3. ROVALCYTE [Suspect]
     Active Substance: VALGANCICLOVIR HYDROCHLORIDE
     Indication: CYTOMEGALOVIRUS INFECTION
     Dosage: SCORED TABLETS
     Route: 048
     Dates: start: 20140611, end: 20141218
  4. ROVALCYTE [Suspect]
     Active Substance: VALGANCICLOVIR HYDROCHLORIDE
     Route: 048
     Dates: start: 20151102
  5. CYMEVAN [Suspect]
     Active Substance: GANCICLOVIR
     Indication: CYTOMEGALOVIRUS INFECTION
     Route: 042
     Dates: start: 20140526, end: 20140611
  6. CELLCEPT [Concomitant]
     Active Substance: MYCOPHENOLATE MOFETIL\MYCOPHENOLATE MOFETIL HYDROCHLORIDE
  7. ADVAGRAF [Concomitant]
     Active Substance: TACROLIMUS
  8. CYMEVAN [Suspect]
     Active Substance: GANCICLOVIR
     Route: 042
     Dates: start: 20151016, end: 20151029
  9. CALCIDIA [Concomitant]
     Active Substance: CALCIUM POLYCARBOPHIL
  10. LANTUS [Concomitant]
     Active Substance: INSULIN GLARGINE

REACTIONS (6)
  - Intracranial pressure increased [Recovered/Resolved]
  - Hallucination, visual [Recovered/Resolved]
  - Intracranial pressure increased [Not Recovered/Not Resolved]
  - Hallucination, auditory [Recovered/Resolved]
  - Encephalitis [Recovered/Resolved]
  - Hallucination [Not Recovered/Not Resolved]

NARRATIVE: CASE EVENT DATE: 20141208
